FAERS Safety Report 15175644 (Version 1)
Quarter: 2018Q3

REPORT INFORMATION
  Report Type: Spontaneous
  Country: DE (occurrence: DE)
  Receive Date: 20180720
  Receipt Date: 20180720
  Transmission Date: 20181010
  Serious: Yes (Hospitalization)
  Sender: FDA-Public Use
  Company Number: PHHY2018DE049317

PATIENT
  Age: 36 Year
  Sex: Female
  Weight: 71 kg

DRUGS (4)
  1. PANTOPRAZOL [Concomitant]
     Active Substance: PANTOPRAZOLE SODIUM
     Indication: DYSPEPSIA
     Dosage: 3X INSGESAMT
     Route: 048
     Dates: start: 20180208, end: 20180211
  2. COTRIM FORTE [Suspect]
     Active Substance: SULFAMETHOXAZOLE\TRIMETHOPRIM
     Indication: SCARLET FEVER
     Dosage: 1920 MG EVERY DAYS
     Route: 048
     Dates: start: 20180208, end: 20180211
  3. PENICILLIN SANDOZ [Suspect]
     Active Substance: PENICILLIN
     Indication: SCARLET FEVER
     Dosage: DAILY DOSE: 4.5 MIU IU(1,000,000S) EVERY DAYS
     Route: 048
     Dates: start: 20180206, end: 20180208
  4. IBEROGAST [Suspect]
     Active Substance: HERBALS
     Indication: ABDOMINAL DISCOMFORT
     Dosage: 3X INSGESAMT
     Route: 048
     Dates: start: 20180208, end: 20180211

REACTIONS (4)
  - Cholangitis [Recovered/Resolved]
  - Hepatitis acute [Recovered/Resolved]
  - Splenomegaly [Recovered/Resolved]
  - Cholecystitis [Recovered/Resolved]

NARRATIVE: CASE EVENT DATE: 20180209
